FAERS Safety Report 20156927 (Version 1)
Quarter: 2021Q4

REPORT INFORMATION
  Report Type: Spontaneous
  Country: US (occurrence: None)
  Receive Date: 20211207
  Receipt Date: 20211207
  Transmission Date: 20220303
  Serious: Yes (Other)
  Sender: FDA-Public Use
  Company Number: None

PATIENT
  Age: 29 Year
  Sex: Female
  Weight: 74.84 kg

DRUGS (1)
  1. .DELTA.8-TETRAHYDROCANNABINOL [Suspect]
     Active Substance: .DELTA.8-TETRAHYDROCANNABINOL
     Route: 048

REACTIONS (7)
  - Panic attack [None]
  - Fear [None]
  - Anxiety [None]
  - Decreased appetite [None]
  - Dissociation [None]
  - Emotional distress [None]
  - Mental disorder [None]

NARRATIVE: CASE EVENT DATE: 20211125
